FAERS Safety Report 24408438 (Version 2)
Quarter: 2025Q1

REPORT INFORMATION
  Report Type: Spontaneous
  Country: US (occurrence: US)
  Receive Date: 20241007
  Receipt Date: 20250303
  Transmission Date: 20250408
  Serious: Yes (Life-Threatening, Other)
  Sender: RARE DISEASE THERAPEUTICS, INC.
  Company Number: US-Rare Disease Therapeutics, Inc.-2162591

PATIENT
  Age: 42 Year
  Sex: Female

DRUGS (1)
  1. ANAVIP [Suspect]
     Active Substance: PIT VIPER (CROTALINAE) IMMUNE GLOBULIN ANTIVENIN (EQUINE)
     Indication: Snake bite
     Dates: start: 20230520, end: 20230520

REACTIONS (4)
  - Urticaria [Recovered/Resolved]
  - Flushing [Recovered/Resolved]
  - Wheezing [Recovered/Resolved]
  - Respiratory distress [Recovered/Resolved]
